FAERS Safety Report 21370387 (Version 2)
Quarter: 2022Q3

REPORT INFORMATION
  Report Type: Report from Study
  Country: JP (occurrence: JP)
  Receive Date: 20220923
  Receipt Date: 20220929
  Transmission Date: 20221026
  Serious: Yes (Hospitalization)
  Sender: FDA-Public Use
  Company Number: JP-GSK-JP2022135181

PATIENT

DRUGS (1)
  1. BELANTAMAB MAFODOTIN [Suspect]
     Active Substance: BELANTAMAB MAFODOTIN
     Indication: Plasma cell myeloma
     Dosage: 163.75 MG, Z, DOSE AT CYCLE 1 DAY 1
     Route: 042
     Dates: start: 20220902, end: 20220902

REACTIONS (1)
  - Pneumonia [Not Recovered/Not Resolved]

NARRATIVE: CASE EVENT DATE: 20220920
